FAERS Safety Report 8540690-5 (Version None)
Quarter: 2012Q3

REPORT INFORMATION
  Report Type: 
  Country: None (occurrence: None)
  Receive Date: 20120726
  Receipt Date: 20120718
  Transmission Date: 20120928
  Serious: Yes (Other)
  Sender: FDA-Public Use
  Company Number: CA-JNJFOC-20120710192

PATIENT
  Sex: Female

DRUGS (5)
  1. REMICADE [Suspect]
     Route: 042
     Dates: start: 20071101
  2. REMICADE [Suspect]
     Indication: CROHN'S DISEASE
     Route: 042
     Dates: start: 20120625
  3. ALL OTHER THERAPEUTICS [Concomitant]
     Route: 065
  4. FLOVENT [Concomitant]
     Route: 065
  5. METHOTREXATE [Concomitant]
     Route: 065

REACTIONS (1)
  - RECTAL POLYP [None]
